FAERS Safety Report 23847823 (Version 2)
Quarter: 2025Q1

REPORT INFORMATION
  Report Type: Spontaneous
  Country: MY (occurrence: MY)
  Receive Date: 20240513
  Receipt Date: 20250120
  Transmission Date: 20250408
  Serious: Yes (Other)
  Sender: PFIZER
  Company Number: MY-TAKEDA-2024TUS045832

PATIENT
  Age: 33 Year
  Sex: Female

DRUGS (3)
  1. CONTROLOC [Suspect]
     Active Substance: PANTOPRAZOLE SODIUM
     Indication: Gastrooesophageal reflux disease
     Dosage: 40 MILLIGRAM, QD
     Route: 042
     Dates: start: 20240502, end: 20240508
  2. CARBIMAZOLE [Concomitant]
     Active Substance: CARBIMAZOLE
  3. ONDANSETRON [Concomitant]
     Active Substance: ONDANSETRON

REACTIONS (1)
  - Electrocardiogram QT prolonged [Not Recovered/Not Resolved]

NARRATIVE: CASE EVENT DATE: 20240502
